FAERS Safety Report 12457421 (Version 2)
Quarter: 2016Q2

REPORT INFORMATION
  Report Type: Spontaneous
  Country: US (occurrence: US)
  Receive Date: 20160610
  Receipt Date: 20160630
  Transmission Date: 20160815
  Serious: Yes (Other)
  Sender: FDA-Public Use
  Company Number: US-ALEXION-A201604259

PATIENT
  Sex: Female

DRUGS (1)
  1. STRENSIQ [Suspect]
     Active Substance: ASFOTASE ALFA
     Indication: PRODUCT USED FOR UNKNOWN INDICATION
     Dosage: UNK
     Route: 058

REACTIONS (6)
  - Tremor [Recovering/Resolving]
  - Blood alkaline phosphatase increased [Recovering/Resolving]
  - Nerve stimulation test abnormal [Unknown]
  - Fatigue [Recovering/Resolving]
  - Hypertension [Unknown]
  - Brain injury [Unknown]

NARRATIVE: CASE EVENT DATE: 20160622
